FAERS Safety Report 4647955-8 (Version None)
Quarter: 2005Q2

REPORT INFORMATION
  Report Type: 
  Country: None (occurrence: None)
  Receive Date: 20050428
  Receipt Date: 20050418
  Transmission Date: 20051028
  Serious: Yes (Hospitalization, Other)
  Sender: FDA-Public Use
  Company Number: TR-ABBOTT-05P-161-0297768-00

PATIENT
  Age: 36 Year
  Sex: Male
  Weight: 125 kg

DRUGS (1)
  1. SIBUTRAMINE [Suspect]
     Indication: OBESITY
     Dates: start: 20010501

REACTIONS (9)
  - CARDIAC FAILURE [None]
  - CARDIOMYOPATHY [None]
  - EJECTION FRACTION DECREASED [None]
  - FATIGUE [None]
  - NOCTURNAL DYSPNOEA [None]
  - UPPER RESPIRATORY TRACT INFECTION [None]
  - VENTRICULAR EXTRASYSTOLES [None]
  - VENTRICULAR HYPOKINESIA [None]
  - WEIGHT INCREASED [None]
